FAERS Safety Report 15230956 (Version 1)
Quarter: 2018Q3

REPORT INFORMATION
  Report Type: Spontaneous
  Country: US (occurrence: US)
  Receive Date: 20180802
  Receipt Date: 20180802
  Transmission Date: 20181010
  Serious: Yes (Other)
  Sender: FDA-Public Use
  Company Number: US-ACCORD-063225

PATIENT
  Age: 40 Year
  Sex: Female
  Weight: 57.61 kg

DRUGS (19)
  1. VENLAFAXINE/VENLAFAXINE HYDROCHLORIDE [Concomitant]
     Dosage: 24 HR EXTENDED RELEASE
  2. PERCOCET [Concomitant]
     Active Substance: ACETAMINOPHEN\OXYCODONE HYDROCHLORIDE
     Indication: PAIN
     Dosage: STRENGTH: 7.5?325 MG
     Dates: start: 20110502
  3. DEXAMETHASONE. [Concomitant]
     Active Substance: DEXAMETHASONE
     Dosage: STRENGTH: 4 MG
     Dates: start: 20110503
  4. TAMOXIFEN/TAMOXIFEN CITRATE [Concomitant]
     Dosage: STRENGTH: 20 MG
     Route: 048
     Dates: start: 20110822
  5. FEMARA [Concomitant]
     Active Substance: LETROZOLE
     Dosage: STRENGTH: 2.5 MG
  6. CYTOXAN [Suspect]
     Active Substance: CYCLOPHOSPHAMIDE
     Indication: BREAST CANCER STAGE I
     Dosage: NO OF CYCLE: 04
     Dates: start: 20110524, end: 20110726
  7. AMBIEN [Concomitant]
     Active Substance: ZOLPIDEM TARTRATE
     Dosage: STRENGTH: 10 MG
  8. CYMBALTA [Concomitant]
     Active Substance: DULOXETINE HYDROCHLORIDE
     Dates: start: 2009, end: 2015
  9. ZOLOFT [Concomitant]
     Active Substance: SERTRALINE HYDROCHLORIDE
     Dates: start: 2009, end: 2015
  10. AMOXICILLIN. [Concomitant]
     Active Substance: AMOXICILLIN
     Dosage: STRENGTH: 500 MG
     Dates: start: 20110405
  11. CLINDAMYCIN. [Concomitant]
     Active Substance: CLINDAMYCIN
     Dosage: STRENGTH: 150 MG
     Dates: start: 20110517
  12. DOCETAXEL ACCORD [Suspect]
     Active Substance: DOCETAXEL
     Indication: BREAST CANCER STAGE I
     Dosage: NO OF CYCLE:04
     Dates: start: 20110524, end: 20110726
  13. HYDROCODONE BITARTRATE/PARACETAMOL [Concomitant]
     Dosage: STRENGTH: 10?500 MG
  14. PREMARIN [Concomitant]
     Active Substance: ESTROGENS, CONJUGATED
     Dosage: DOSAGE: 0.625 MG/GRAM
  15. XANAX [Concomitant]
     Active Substance: ALPRAZOLAM
     Dosage: STRENGTH: 0.5 MG
  16. LEXAPRO [Concomitant]
     Active Substance: ESCITALOPRAM OXALATE
     Route: 048
     Dates: start: 20110405
  17. ADVIL [Concomitant]
     Active Substance: IBUPROFEN
     Dosage: STRENGTH: 200 MG
  18. COMPAZINE [Concomitant]
     Active Substance: PROCHLORPERAZINE MALEATE
     Dosage: STRENGTH: 10 MG
     Route: 048
     Dates: start: 20110518
  19. FILGRASTIM [Concomitant]
     Active Substance: FILGRASTIM
     Dosage: PRE?FILLED SYRINGE FOR 10 DAYS
     Dates: start: 20110613

REACTIONS (1)
  - Alopecia [Not Recovered/Not Resolved]

NARRATIVE: CASE EVENT DATE: 201201
